FAERS Safety Report 5444521-1 (Version None)
Quarter: 2007Q3

REPORT INFORMATION
  Report Type: 
  Country: None (occurrence: None)
  Receive Date: 20070906
  Receipt Date: 20070823
  Transmission Date: 20080115
  Serious: Yes (Hospitalization)
  Sender: FDA-Public Use
  Company Number: AU-AMGEN-US238398

PATIENT
  Sex: Male
  Weight: 83 kg

DRUGS (1)
  1. KEPIVANCE [Suspect]
     Indication: MUCOSAL INFLAMMATION
     Route: 042
     Dates: start: 20070806, end: 20070808

REACTIONS (5)
  - CHILLS [None]
  - DYSPNOEA [None]
  - HYPOAESTHESIA [None]
  - PYREXIA [None]
  - SEPSIS [None]
